FAERS Safety Report 5149172-4 (Version None)
Quarter: 2006Q4

REPORT INFORMATION
  Report Type: 
  Country: None (occurrence: None)
  Receive Date: 20061113
  Receipt Date: 20060822
  Transmission Date: 20070319
  Serious: No
  Sender: FDA-Public Use
  Company Number: US-GLAXOSMITHKLINE-A0617676A

PATIENT
  Age: 83 Year
  Sex: Male

DRUGS (2)
  1. COREG [Suspect]
     Dosage: 3.125TAB TWICE PER DAY
     Route: 048
     Dates: start: 20060612
  2. NORVASC [Concomitant]

REACTIONS (2)
  - FATIGUE [None]
  - MUSCULAR WEAKNESS [None]
